FAERS Safety Report 6670104-1 (Version None)
Quarter: 2010Q2

REPORT INFORMATION
  Report Type: 
  Country: None (occurrence: None)
  Receive Date: 20100406
  Receipt Date: 20100224
  Transmission Date: 20101027
  Serious: No
  Sender: FDA-Public Use
  Company Number: US-ALLERGAN-1002390US

PATIENT
  Age: 42 Year
  Sex: Female

DRUGS (4)
  1. LATISSE [Suspect]
     Indication: GROWTH OF EYELASHES
     Dosage: UNK GTT, QHS
     Route: 061
  2. TAMOXIFEN CITRATE [Concomitant]
     Indication: BREAST CANCER
  3. SYNTHROID [Concomitant]
     Indication: HYPOTHYROIDISM
  4. VISINE EYE DROPS [Concomitant]

REACTIONS (3)
  - EYELIDS PRURITUS [None]
  - MADAROSIS [None]
  - WRONG TECHNIQUE IN DRUG USAGE PROCESS [None]
